FAERS Safety Report 20196924 (Version 2)
Quarter: 2022Q1

REPORT INFORMATION
  Report Type: Spontaneous
  Country: IT (occurrence: IT)
  Receive Date: 20211217
  Receipt Date: 20220101
  Transmission Date: 20220423
  Serious: Yes (Other)
  Sender: FDA-Public Use
  Company Number: IT-AMAROX PHARMA GMBH-AMR2021IT01570

PATIENT
  Age: 22 Year
  Sex: Female

DRUGS (13)
  1. AMLODIPINE [Suspect]
     Active Substance: AMLODIPINE BESYLATE
     Indication: Atypical haemolytic uraemic syndrome
     Dosage: 5 MILLIGRAM, ONCE A DAY
     Route: 065
  2. AMLODIPINE [Suspect]
     Active Substance: AMLODIPINE BESYLATE
     Indication: Hypertension
  3. METHYLPREDNISOLONE [Concomitant]
     Active Substance: METHYLPREDNISOLONE
     Indication: Atypical haemolytic uraemic syndrome
     Dosage: 1 MILLIGRAM/KILOGRAM, ONCE A DAY ( (WITH GRADUAL REDUCTION TO 25MG DAILY AFTER 1 MONTH))
     Route: 065
  4. METHYLPREDNISOLONE [Concomitant]
     Active Substance: METHYLPREDNISOLONE
     Dosage: 25 MG DAILY AFTER 1 MONTH
     Route: 065
  5. FUROSEMIDE [Concomitant]
     Active Substance: FUROSEMIDE
     Indication: Hypertension
     Dosage: 750 MILLIGRAM, ONCE A DAY
     Route: 065
  6. FUROSEMIDE [Concomitant]
     Active Substance: FUROSEMIDE
     Indication: Atypical haemolytic uraemic syndrome
  7. ATENOLOL [Concomitant]
     Active Substance: ATENOLOL
     Indication: Hypertension
     Dosage: 100 MILLIGRAM, ONCE A DAY
     Route: 065
  8. ATENOLOL [Concomitant]
     Active Substance: ATENOLOL
     Indication: Atypical haemolytic uraemic syndrome
  9. ECULIZUMAB [Concomitant]
     Active Substance: ECULIZUMAB
     Indication: Atypical haemolytic uraemic syndrome
     Dosage: 900 MILLIGRAM, EVERY WEEK ( (EVERY 7DAYS, FOR THE FIRST 4WEEKS)
     Route: 065
  10. ECULIZUMAB [Concomitant]
     Active Substance: ECULIZUMAB
     Dosage: 1200 MILLIGRAM (FIFTH WEEK)
     Route: 065
  11. ECULIZUMAB [Concomitant]
     Active Substance: ECULIZUMAB
     Dosage: 1200 MILLIGRAM (EVERY 15DAYS THEREAFTER)
     Route: 065
  12. ECULIZUMAB [Concomitant]
     Active Substance: ECULIZUMAB
     Dosage: 1200 MILLIGRAM, CYCLICAL
     Route: 065
  13. ECULIZUMAB [Concomitant]
     Active Substance: ECULIZUMAB
     Dosage: 1200 MILLIGRAM, EVERY WEEK
     Route: 065

REACTIONS (5)
  - Peripheral swelling [Unknown]
  - Retinal detachment [Recovered/Resolved]
  - Drug intolerance [Unknown]
  - Oedema peripheral [Unknown]
  - Hypertensive crisis [Unknown]
